FAERS Safety Report 9605724 (Version 4)
Quarter: 2013Q4

REPORT INFORMATION
  Report Type: Report from Study
  Country: US (occurrence: US)
  Receive Date: 20131008
  Receipt Date: 20131119
  Transmission Date: 20140711
  Serious: Yes (Other)
  Sender: FDA-Public Use
  Company Number: US-009507513-1309USA013697

PATIENT
  Sex: Female

DRUGS (7)
  1. REBETOL [Suspect]
     Indication: CHRONIC HEPATITIS C
     Dosage: 800 MG DAILY IN TWO DIVIDED DOSES
     Route: 048
     Dates: start: 20130228
  2. REBETOL [Suspect]
     Dosage: 600 MG DAILY DOSE, FREQUENCY NOT REPORTED
     Route: 048
     Dates: start: 2013, end: 20130905
  3. REBETOL [Suspect]
     Dosage: 400 MG DAILY DOSE, FREQUENCY UNKNOWN
     Route: 048
     Dates: start: 2013, end: 20130905
  4. VICTRELIS [Suspect]
     Indication: CHRONIC HEPATITIS C
     Dosage: UNK
     Dates: start: 20130328, end: 20130905
  5. PEGASYS [Suspect]
     Indication: CHRONIC HEPATITIS C
     Dosage: 180 MICROGRAM, WEEKLY OF PEGASYS PROCLICK
     Route: 058
     Dates: start: 20130228, end: 20130905
  6. PROCRIT [Concomitant]
     Dosage: 50 UNIT NOT REPORTED
  7. TIROSINT [Concomitant]
     Dosage: 88 MICROGRAM

REACTIONS (25)
  - Weight decreased [Unknown]
  - Lymphadenopathy [Unknown]
  - Syncope [Unknown]
  - Mood altered [Unknown]
  - Lip injury [Unknown]
  - Upper respiratory tract congestion [Unknown]
  - Respiratory tract congestion [Unknown]
  - Dizziness [Unknown]
  - Myalgia [Unknown]
  - Arthralgia [Unknown]
  - Injection site erythema [Unknown]
  - Dyspnoea [Unknown]
  - Fatigue [Unknown]
  - Nausea [Unknown]
  - Depression [Unknown]
  - Pain [Unknown]
  - Asthenia [Unknown]
  - Choking sensation [Unknown]
  - Restlessness [Unknown]
  - Insomnia [Unknown]
  - Anaemia [Not Recovered/Not Resolved]
  - Alopecia [Unknown]
  - Feeling abnormal [Unknown]
  - Irritability [Unknown]
  - Overdose [Unknown]
